FAERS Safety Report 14106870 (Version 6)
Quarter: 2018Q2

REPORT INFORMATION
  Report Type: Spontaneous
  Country: US (occurrence: US)
  Receive Date: 20171019
  Receipt Date: 20180606
  Transmission Date: 20180711
  Serious: Yes (Hospitalization)
  Sender: FDA-Public Use
  Company Number: US-PFIZER INC-2017450888

PATIENT
  Age: 71 Year
  Sex: Female
  Weight: 86 kg

DRUGS (9)
  1. PEPCID [Concomitant]
     Active Substance: FAMOTIDINE
     Indication: GASTROOESOPHAGEAL REFLUX DISEASE
     Dosage: 10 MG, [ONCE OR TWICE DAILY]
     Route: 048
     Dates: start: 2017
  2. IBRANCE [Suspect]
     Active Substance: PALBOCICLIB
     Dosage: 100 MG, CYCLIC (FOR 3 WEEKS AND THEN OFF OF IT FOR A WEEK)
     Route: 048
     Dates: start: 201704
  3. LEVOTHYROXINE. [Concomitant]
     Active Substance: LEVOTHYROXINE
     Indication: THYROID DISORDER
     Dosage: 112 UG, 1X/DAY
     Route: 048
  4. LISINOPRIL. [Concomitant]
     Active Substance: LISINOPRIL
     Indication: BLOOD PRESSURE ABNORMAL
     Dosage: 10 MG, 1X/DAY
     Route: 048
  5. TUMS [Concomitant]
     Active Substance: CALCIUM CARBONATE
     Indication: CALCIUM DEFICIENCY
     Dosage: 750 MG, 1X/DAY
     Route: 048
     Dates: start: 2017
  6. IBRANCE [Suspect]
     Active Substance: PALBOCICLIB
     Indication: BREAST CANCER STAGE IV
     Dosage: 125 MG, UNK
  7. IBRANCE [Suspect]
     Active Substance: PALBOCICLIB
     Dosage: 100 MG, 1X/DAY
  8. LETROZOLE. [Concomitant]
     Active Substance: LETROZOLE
     Indication: BREAST CANCER STAGE IV
     Dosage: 2.5 MG, DAILY
     Route: 048
     Dates: start: 201704
  9. VITAMIN D3 [Concomitant]
     Active Substance: CHOLECALCIFEROL
     Dosage: 2000 IU, 1X/DAY
     Route: 048
     Dates: start: 2017

REACTIONS (8)
  - White blood cell count decreased [Unknown]
  - Malaise [Unknown]
  - Headache [Unknown]
  - Fatigue [Not Recovered/Not Resolved]
  - Rhinorrhoea [Unknown]
  - Body height decreased [Unknown]
  - Muscle spasms [Unknown]
  - Hypoaesthesia [Unknown]

NARRATIVE: CASE EVENT DATE: 2017
